FAERS Safety Report 6500963-4 (Version None)
Quarter: 2009Q4

REPORT INFORMATION
  Report Type: 
  Country: None (occurrence: None)
  Receive Date: 20091216
  Receipt Date: 20090513
  Transmission Date: 20100525
  Serious: No
  Sender: FDA-Public Use
  Company Number: A0782666A

PATIENT
  Age: 52 Year
  Sex: Female

DRUGS (1)
  1. COMMIT [Suspect]
     Route: 002

REACTIONS (3)
  - DRUG ADMINISTRATION ERROR [None]
  - DRUG INEFFECTIVE [None]
  - EXPIRED DRUG ADMINISTERED [None]
